FAERS Safety Report 4709084-4 (Version None)
Quarter: 2005Q3

REPORT INFORMATION
  Report Type: 
  Country: None (occurrence: None)
  Receive Date: 20050707
  Receipt Date: 20050707
  Transmission Date: 20060218
  Serious: Yes (Life-Threatening)
  Sender: FDA-Public Use
  Company Number: None

PATIENT
  Age: 77 Year
  Sex: Male
  Weight: 104 kg

DRUGS (11)
  1. ENOXAPARIN SODIUM [Suspect]
     Indication: MALAISE
     Dosage: 40MG DAILY SUBCUTANEOUS
     Route: 058
     Dates: start: 20050619, end: 20050623
  2. ENOXAPARIN SODIUM [Suspect]
     Indication: THROMBOSIS PROPHYLAXIS
     Dosage: 40MG DAILY SUBCUTANEOUS
     Route: 058
     Dates: start: 20050619, end: 20050623
  3. HEPARIN [Suspect]
     Indication: SURGERY
     Dosage: ONCE, INTRAVENOUS
     Route: 042
     Dates: start: 20050617, end: 20050617
  4. LEVOFLOXACIN [Concomitant]
  5. PROPOFOL [Concomitant]
  6. PHENYLEPHRINE [Concomitant]
  7. AMIODARONE HCL [Concomitant]
  8. PAROXETINE HCL [Concomitant]
  9. PRAMIPEXOLE [Concomitant]
  10. INSULIN [Concomitant]
  11. FAMOTIDINE [Concomitant]

REACTIONS (5)
  - ANTIBODY TEST POSITIVE [None]
  - HEPATIC FUNCTION ABNORMAL [None]
  - PLATELET COUNT DECREASED [None]
  - PLATELET FACTOR 4 INCREASED [None]
  - RENAL IMPAIRMENT [None]
